FAERS Safety Report 6406288-X (Version None)
Quarter: 2009Q4

REPORT INFORMATION
  Report Type: 
  Country: None (occurrence: None)
  Receive Date: 20091019
  Receipt Date: 20091007
  Transmission Date: 20100525
  Serious: Yes (Other)
  Sender: FDA-Public Use
  Company Number: PHHY2009DE43860

PATIENT
  Sex: Male
  Weight: 85 kg

DRUGS (6)
  1. ALISKIREN ALI+ [Suspect]
     Indication: HYPERTENSION
     Dosage: 150 MG/DAY
     Dates: start: 20071203
  2. ALISKIREN ALI+ [Suspect]
     Dosage: 300 MG
     Dates: start: 20071228
  3. DELMUNO [Concomitant]
     Indication: HYPERTENSION
     Dosage: 5/5 MG PER DAY
  4. BISOPROLOL FUMARATE AND HYDROCHLOROTHIAZIDE [Concomitant]
     Indication: HYPERTENSION
     Dosage: 5/12.5 MG PER DAY
  5. EBRANTIL [Concomitant]
     Indication: HYPERTENSION
     Dosage: 180 MG/ DAY
     Dates: end: 20081002
  6. EBRANTIL [Concomitant]
     Dosage: 270 MG/DAY
     Dates: start: 20081002

REACTIONS (1)
  - MYOCARDIAL INFARCTION [None]
